FAERS Safety Report 6363642-2 (Version None)
Quarter: 2009Q3

REPORT INFORMATION
  Report Type: 
  Country: None (occurrence: None)
  Receive Date: 20090919
  Receipt Date: 20090707
  Transmission Date: 20100115
  Serious: No
  Sender: FDA-Public Use
  Company Number: US-ABBOTT-09P-163-0583833-00

PATIENT
  Sex: Female
  Weight: 57.204 kg

DRUGS (1)
  1. HUMIRA [Suspect]
     Indication: COLITIS ULCERATIVE
     Dosage: LOADING DOSE, DAY ONE
     Dates: start: 20090629

REACTIONS (5)
  - ABDOMINAL DISTENSION [None]
  - FATIGUE [None]
  - GASTROINTESTINAL PAIN [None]
  - INJECTION SITE PAIN [None]
  - OROPHARYNGEAL PAIN [None]
